FAERS Safety Report 25832666 (Version 1)
Quarter: 2025Q3

REPORT INFORMATION
  Report Type: Spontaneous
  Country: US (occurrence: None)
  Receive Date: 20250922
  Receipt Date: 20250922
  Transmission Date: 20251021
  Serious: Yes (Hospitalization)
  Sender: FDA-CTU
  Company Number: None

PATIENT
  Age: 73 Year
  Sex: Male

DRUGS (11)
  1. PREDNISONE [Suspect]
     Active Substance: PREDNISONE
     Indication: Prostate cancer
     Dosage: FREQUENCY : DAILY;?
     Route: 048
     Dates: start: 20250828
  2. PREDNISONE [Suspect]
     Active Substance: PREDNISONE
     Indication: Coronary artery disease
  3. ABIRATERONE [Concomitant]
     Active Substance: ABIRATERONE
  4. ASPIRIN [Concomitant]
     Active Substance: ASPIRIN
  5. ELIGARD [Concomitant]
     Active Substance: LEUPROLIDE ACETATE
  6. ELIQUIS [Concomitant]
     Active Substance: APIXABAN
  7. FUROSEMIDE [Concomitant]
     Active Substance: FUROSEMIDE
  8. LATANOPROST [Concomitant]
     Active Substance: LATANOPROST
  9. LEVETIRACETAM [Concomitant]
     Active Substance: LEVETIRACETAM
  10. METOPROLOL TARTRATE [Concomitant]
     Active Substance: METOPROLOL TARTRATE
  11. POTASSIUM CHLORIDE [Concomitant]
     Active Substance: POTASSIUM CHLORIDE

REACTIONS (2)
  - Cellulitis [None]
  - Blood potassium abnormal [None]

NARRATIVE: CASE EVENT DATE: 20250905
